FAERS Safety Report 7601243-6 (Version None)
Quarter: 2011Q3

REPORT INFORMATION
  Report Type: 
  Country: None (occurrence: None)
  Receive Date: 20110711
  Receipt Date: 20110630
  Transmission Date: 20111222
  Serious: Yes (Hospitalization)
  Sender: FDA-Public Use
  Company Number: US-JNJFOC-20110611328

PATIENT
  Sex: Male
  Weight: 92.08 kg

DRUGS (18)
  1. PREDNISONE [Suspect]
     Indication: PROSTATE CANCER METASTATIC
     Route: 048
     Dates: start: 20110228
  2. NEURONTIN [Concomitant]
     Indication: PRODUCT USED FOR UNKNOWN INDICATION
     Route: 048
     Dates: start: 20110413
  3. PRILOSEC [Concomitant]
     Indication: GASTROOESOPHAGEAL REFLUX DISEASE
     Route: 048
     Dates: start: 20100201
  4. GLUCOPHAGE [Concomitant]
     Indication: TYPE 2 DIABETES MELLITUS
     Route: 048
     Dates: start: 20100420
  5. ABIRATERONE ACETATE [Suspect]
     Indication: PROSTATE CANCER METASTATIC
     Route: 048
     Dates: start: 20110228
  6. ASPIRIN [Concomitant]
     Indication: PROPHYLAXIS
     Route: 048
     Dates: start: 20060426
  7. MARINOL [Concomitant]
     Indication: DECREASED APPETITE
     Route: 048
     Dates: start: 20110131
  8. MEGESTROL ACETATE [Concomitant]
     Indication: DECREASED APPETITE
     Route: 048
     Dates: start: 20100101
  9. FISH OIL [Concomitant]
     Indication: MEDICAL DIET
     Route: 048
     Dates: start: 20100801
  10. OXYCONTIN [Concomitant]
     Indication: BACK PAIN
     Route: 048
     Dates: start: 20110131
  11. LORTAB [Concomitant]
     Indication: BACK PAIN
     Dosage: 5/100
     Route: 048
     Dates: start: 20101210
  12. VITAMIN D W/ CALCIUM [Concomitant]
     Indication: MEDICAL DIET
     Route: 048
     Dates: start: 20091101
  13. PREDNISONE [Suspect]
     Route: 048
     Dates: start: 20101207
  14. INSULIN [Concomitant]
     Route: 058
     Dates: start: 20090813
  15. ABIRATERONE ACETATE [Suspect]
     Route: 048
  16. SALSALATE [Concomitant]
     Indication: ARTHRITIS
     Route: 048
     Dates: start: 20101101
  17. ATENOLOL [Concomitant]
     Indication: HYPERTENSION
     Route: 048
     Dates: start: 20101101
  18. INSULIN [Concomitant]
     Indication: TYPE 2 DIABETES MELLITUS
     Route: 058
     Dates: start: 20091130

REACTIONS (1)
  - VOMITING [None]
